FAERS Safety Report 5877462-6 (Version None)
Quarter: 2008Q3

REPORT INFORMATION
  Report Type: 
  Country: None (occurrence: None)
  Receive Date: 20080909
  Receipt Date: 20080829
  Transmission Date: 20090109
  Serious: No
  Sender: FDA-Public Use
  Company Number: TPA2008A01383

PATIENT
  Age: 57 Year
  Sex: Female

DRUGS (6)
  1. ACTOS [Suspect]
     Indication: TYPE 2 DIABETES MELLITUS
     Dosage: 45 MG, 1 IN 1 D, PER ORAL
     Route: 048
  2. COSPOT (TIMOLOL MALEATE, DORZOLAMIDE HYDROCHLORIDE) [Concomitant]
  3. GLIMEPIRIDE [Concomitant]
  4. ZOLPIDEM TARTRATE [Concomitant]
  5. LISINOPRIL/HCTZ (HYDROCHLOROTHIAZIDE, LISINOPRIL) [Concomitant]
  6. AMLODIPINE (AMLODIPINE) (TABLETS) [Concomitant]

REACTIONS (3)
  - BLOOD PRESSURE DECREASED [None]
  - DRUG DISPENSING ERROR [None]
  - WRONG DRUG ADMINISTERED [None]
